FAERS Safety Report 8336003-4 (Version None)
Quarter: 2012Q2

REPORT INFORMATION
  Report Type: 
  Country: None (occurrence: None)
  Receive Date: 20120501
  Receipt Date: 20120501
  Transmission Date: 20120825
  Serious: No
  Sender: FDA-Public Use
  Company Number: None

PATIENT
  Sex: Male
  Weight: 83 kg

DRUGS (2)
  1. ETOPOSIDE [Suspect]
     Dosage: 600 MG
  2. CISPLATIN [Suspect]
     Dosage: 180 MG

REACTIONS (2)
  - NEUTROPHIL COUNT DECREASED [None]
  - LYMPHOCYTE COUNT DECREASED [None]
